FAERS Safety Report 6505947-8 (Version None)
Quarter: 2009Q4

REPORT INFORMATION
  Report Type: 
  Country: None (occurrence: None)
  Receive Date: 20091218
  Receipt Date: 20091210
  Transmission Date: 20100525
  Serious: Yes (Hospitalization)
  Sender: FDA-Public Use
  Company Number: JP-MERCK-0912USA00269

PATIENT
  Age: 61 Year
  Sex: Female

DRUGS (7)
  1. ZETIA [Suspect]
     Indication: HYPERCHOLESTEROLAEMIA
     Route: 048
     Dates: start: 20090529, end: 20090626
  2. PANALDINE [Suspect]
     Route: 048
     Dates: start: 20090512, end: 20090612
  3. ASPIRIN [Concomitant]
     Route: 065
  4. TELMISARTAN [Concomitant]
     Route: 065
  5. TEPRENONE [Concomitant]
     Route: 065
  6. ATORVASTATIN CALCIUM [Concomitant]
     Route: 065
  7. SARPOGRELATE HYDROCHLORIDE [Concomitant]
     Route: 065

REACTIONS (2)
  - LIVER DISORDER [None]
  - PLATELET COUNT DECREASED [None]
